FAERS Safety Report 12699485 (Version 2)
Quarter: 2016Q4

REPORT INFORMATION
  Report Type: Report from Study
  Country: US (occurrence: US)
  Receive Date: 20160830
  Receipt Date: 20161216
  Transmission Date: 20170207
  Serious: Yes (Hospitalization)
  Sender: FDA-Public Use
  Company Number: US-GILEAD-2016-0230429

PATIENT
  Age: 7 Year
  Sex: Male
  Weight: 24 kg

DRUGS (25)
  1. PROAIR HFA [Concomitant]
     Active Substance: ALBUTEROL SULFATE
     Dosage: 2 PUFFS BID
     Route: 055
     Dates: start: 20160329
  2. HYPERSAL [Concomitant]
     Dosage: 4 ML, UNK
     Route: 055
     Dates: start: 20150727
  3. TYLENOL [Concomitant]
     Active Substance: ACETAMINOPHEN
     Dosage: 320 MG, Q4HR PRN
     Route: 048
     Dates: start: 20150905
  4. AZTREONAM LYSINE [Suspect]
     Active Substance: AZTREONAM LYSINE
     Indication: CYSTIC FIBROSIS LUNG
     Dosage: 75 MG, TID X 28 DAYS
     Route: 055
     Dates: start: 20150727
  5. PULMOZYME [Concomitant]
     Active Substance: DORNASE ALFA
     Dosage: 2.5 MG, QHS
     Route: 055
     Dates: start: 20150727
  6. ZENPEP [Concomitant]
     Active Substance: PANCRELIPASE AMYLASE\PANCRELIPASE LIPASE\PANCRELIPASE PROTEASE
     Dosage: 5 CAPS BEFORE AND AFTER GT FEEDS
     Dates: start: 20160203
  7. ZENPEP [Concomitant]
     Active Substance: PANCRELIPASE AMYLASE\PANCRELIPASE LIPASE\PANCRELIPASE PROTEASE
     Dosage: 5 CAPS WITH MEALS
     Dates: start: 20160329
  8. ZYRTEC [Concomitant]
     Active Substance: CETIRIZINE HYDROCHLORIDE
     Dosage: 5 MG, QHS
     Route: 048
     Dates: start: 20160411
  9. ZITHROMAX [Concomitant]
     Active Substance: AZITHROMYCIN DIHYDRATE
     Dosage: 250 MG, MOWEFR @ 09
     Dates: start: 20160812
  10. PROAIR HFA [Concomitant]
     Active Substance: ALBUTEROL SULFATE
     Dosage: 2 PUFFS Q 4H PRN
     Route: 055
     Dates: start: 20150624
  11. REPLESTA [Concomitant]
     Dosage: 50,000 UNITS Q 28 D
     Route: 048
     Dates: start: 20160629
  12. MIRALAX [Concomitant]
     Active Substance: POLYETHYLENE GLYCOL 3350
     Dosage: 17 GM BID
     Route: 048
     Dates: start: 20160905
  13. ACCUNEB [Concomitant]
     Active Substance: ALBUTEROL SULFATE
     Dosage: 1.25 MG, Q4HR PRN
     Dates: start: 20150909
  14. BACITRACIN                         /00163902/ [Concomitant]
     Dosage: 1 APPLIC BID PRN
     Route: 061
     Dates: start: 20160905
  15. AZTREONAM LYSINE [Suspect]
     Active Substance: AZTREONAM LYSINE
     Indication: PSEUDOMONAS INFECTION
  16. AQUADEKS                           /07679501/ [Concomitant]
     Active Substance: MINERALS\VITAMINS
     Dosage: 1 CAP DAILY
     Route: 048
     Dates: start: 20150727
  17. ZENPEP [Concomitant]
     Active Substance: PANCRELIPASE AMYLASE\PANCRELIPASE LIPASE\PANCRELIPASE PROTEASE
     Dosage: 4 CAP WITH SNACKS
     Route: 048
     Dates: start: 20150727
  18. FLONASE                            /00908302/ [Concomitant]
     Active Substance: MOMETASONE FUROATE
     Dosage: 1 SPRAY HS
     Route: 045
     Dates: start: 20160812
  19. ZANTAC [Concomitant]
     Active Substance: RANITIDINE HYDROCHLORIDE
     Dosage: 75 MG, Q12
     Route: 048
     Dates: start: 20160905
  20. URSO [Concomitant]
     Active Substance: URSODIOL
     Dosage: 300 MG, QHS
     Route: 048
     Dates: start: 20160202
  21. NYSTATIN. [Concomitant]
     Active Substance: NYSTATIN
     Dosage: 1 APPLICATION BID
     Route: 061
     Dates: start: 20160822
  22. QVAR [Concomitant]
     Active Substance: BECLOMETHASONE DIPROPIONATE
     Dosage: 80 MCG 2 PUFFS BID
     Route: 055
     Dates: start: 20150727
  23. SINGULAIR [Concomitant]
     Active Substance: MONTELUKAST SODIUM
     Dosage: 5 MG, QHS
     Route: 048
     Dates: start: 20151028
  24. HYDROCORTISONE. [Concomitant]
     Active Substance: HYDROCORTISONE
     Dosage: 1 APPLICATION QID PRN
     Route: 061
     Dates: start: 20160905
  25. MIRALAX [Concomitant]
     Active Substance: POLYETHYLENE GLYCOL 3350
     Dosage: 8.5 GM BID
     Route: 048
     Dates: start: 20150727

REACTIONS (2)
  - Tracheobronchitis [Recovered/Resolved]
  - Cough [Recovered/Resolved]

NARRATIVE: CASE EVENT DATE: 20160822
